FAERS Safety Report 21784000 (Version 5)
Quarter: 2024Q1

REPORT INFORMATION
  Report Type: Report from Study
  Country: CA (occurrence: CA)
  Receive Date: 20221227
  Receipt Date: 20240207
  Transmission Date: 20240409
  Serious: Yes (Hospitalization)
  Sender: FDA-Public Use
  Company Number: CA-MYLANLABS-2022M1146014

PATIENT

DRUGS (1)
  1. HULIO [Suspect]
     Active Substance: ADALIMUMAB-FKJP
     Indication: Crohn^s disease
     Dosage: 40 MILLIGRAM, BIWEEKLY (14)
     Route: 058
     Dates: start: 20220716

REACTIONS (9)
  - Mental disorder [Unknown]
  - Disturbance in attention [Unknown]
  - Confusional state [Unknown]
  - Fear of injection [Unknown]
  - Product dose omission issue [Unknown]
  - Lack of injection site rotation [Unknown]
  - Circumstance or information capable of leading to medication error [Unknown]
  - Psychotic disorder [Unknown]
  - Self-medication [Unknown]
